FAERS Safety Report 15720983 (Version 2)
Quarter: 2018Q4

REPORT INFORMATION
  Report Type: Other
  Country: IT (occurrence: IT)
  Receive Date: 20181214
  Receipt Date: 20181222
  Transmission Date: 20190205
  Serious: Yes (Hospitalization)
  Sender: FDA-Public Use
  Company Number: IT-MACLEODS PHARMACEUTICALS US LTD-MAC2018019188

PATIENT

DRUGS (3)
  1. LAMICTAL [Concomitant]
     Active Substance: LAMOTRIGINE
     Indication: PRODUCT USED FOR UNKNOWN INDICATION
     Dosage: 200 MILLIGRAM
     Route: 048
  2. RIVOTRIL [Concomitant]
     Active Substance: CLONAZEPAM
     Indication: PRODUCT USED FOR UNKNOWN INDICATION
     Dosage: 0.5 MILLIGRAM,TABLET
     Route: 048
  3. ESCITALOPRAM [Suspect]
     Active Substance: ESCITALOPRAM OXALATE
     Indication: EPILEPSY
     Dosage: 15 MILLIGRAM, QD, CIPRALEX
     Route: 048
     Dates: start: 20180530, end: 20180630

REACTIONS (2)
  - Flight of ideas [Recovering/Resolving]
  - Sensory disturbance [Recovering/Resolving]

NARRATIVE: CASE EVENT DATE: 20180630
